FAERS Safety Report 10059374 (Version 1)
Quarter: 2014Q2

REPORT INFORMATION
  Report Type: Spontaneous
  Country: US (occurrence: US)
  Receive Date: 20140404
  Receipt Date: 20140404
  Transmission Date: 20141212
  Serious: Yes (Hospitalization)
  Sender: FDA-Public Use
  Company Number: US-ASTRAZENECA-2014SE22281

PATIENT
  Age: 80 Year
  Sex: Female
  Weight: 63.8 kg

DRUGS (20)
  1. NEXIUM [Suspect]
     Indication: HIATUS HERNIA
     Route: 048
     Dates: start: 2013
  2. NEXIUM [Suspect]
     Indication: GASTROOESOPHAGEAL REFLUX DISEASE
     Route: 048
     Dates: start: 2013
  3. LISINOPRIL [Suspect]
     Route: 048
  4. OXYGEN [Concomitant]
     Indication: SLEEP APNOEA SYNDROME
     Dosage: AS REQUIRED
     Route: 048
     Dates: start: 2011
  5. ALBUTEROL SULFATE [Concomitant]
     Indication: DYSPNOEA
     Route: 055
     Dates: start: 20130311
  6. XANAX [Concomitant]
     Indication: ANXIETY
     Dosage: AS REQUIRED
     Route: 048
  7. XANAX [Concomitant]
     Indication: ANXIETY
     Route: 048
  8. VITAMIN C [Concomitant]
     Indication: SUPPLEMENTATION THERAPY
     Route: 048
  9. BABY ASPIRIN [Concomitant]
     Indication: CARDIAC DISORDER
     Route: 048
  10. VITAMIN D3 [Concomitant]
     Indication: SUPPLEMENTATION THERAPY
     Dosage: 1000 UNIT , DAILY
     Route: 048
  11. DILTIAZEM [Concomitant]
     Route: 048
  12. FERROUS SULFATE [Concomitant]
     Indication: SUPPLEMENTATION THERAPY
     Route: 048
  13. GABAPENTIN [Concomitant]
  14. IMDUR [Concomitant]
     Route: 048
  15. NASONEX [Concomitant]
     Dosage: 2 SPRAY, BID
     Route: 045
  16. PRIVASTATIN [Concomitant]
     Route: 048
  17. PROAIR [Concomitant]
     Dosage: 2 PUFFS, PRN
     Route: 055
  18. EVISTA [Concomitant]
     Route: 048
  19. SPIRIVA [Concomitant]
     Route: 055
  20. COQ10 [Concomitant]
     Indication: SUPPLEMENTATION THERAPY
     Dosage: TAKE 1 DAILY
     Route: 048

REACTIONS (7)
  - Pneumonia [Unknown]
  - Aspiration [Unknown]
  - Body height decreased [Unknown]
  - Decreased appetite [Unknown]
  - Diarrhoea [Unknown]
  - Abdominal discomfort [Unknown]
  - Intentional product misuse [Unknown]
